FAERS Safety Report 14987172 (Version 1)
Quarter: 2018Q2

REPORT INFORMATION
  Report Type: Report from Study
  Country: CA (occurrence: CA)
  Receive Date: 20180608
  Receipt Date: 20180608
  Transmission Date: 20180711
  Serious: Yes (Hospitalization)
  Sender: FDA-Public Use
  Company Number: CA-ROCHE-2129444

PATIENT
  Age: 66 Year
  Sex: Male

DRUGS (10)
  1. ALLOPURINOL. [Concomitant]
     Active Substance: ALLOPURINOL
  2. DEXAMETHASONE. [Concomitant]
     Active Substance: DEXAMETHASONE
  3. AVASTIN [Suspect]
     Active Substance: BEVACIZUMAB
     Indication: BRAIN NEOPLASM MALIGNANT
     Route: 042
     Dates: start: 20180509
  4. LOSEC [Concomitant]
     Active Substance: OMEPRAZOLE
  5. HUMALOG [Concomitant]
     Active Substance: INSULIN LISPRO
  6. KEPPRA [Concomitant]
     Active Substance: LEVETIRACETAM
  7. SYNTHROID [Concomitant]
     Active Substance: LEVOTHYROXINE SODIUM
  8. RAMIPRIL. [Concomitant]
     Active Substance: RAMIPRIL
  9. LANTUS [Concomitant]
     Active Substance: INSULIN GLARGINE
  10. OMEPRAZOLE. [Concomitant]
     Active Substance: OMEPRAZOLE

REACTIONS (5)
  - Diarrhoea [Recovered/Resolved]
  - Blood potassium decreased [Recovering/Resolving]
  - Blood creatinine increased [Recovering/Resolving]
  - Blood sodium increased [Recovering/Resolving]
  - Dehydration [Recovered/Resolved]

NARRATIVE: CASE EVENT DATE: 20180522
